FAERS Safety Report 24643845 (Version 1)
Quarter: 2024Q4

REPORT INFORMATION
  Report Type: Spontaneous
  Country: FR (occurrence: FR)
  Receive Date: 20241120
  Receipt Date: 20241120
  Transmission Date: 20250114
  Serious: Yes (Other)
  Sender: GUERBET
  Company Number: None

PATIENT
  Age: 66 Year
  Sex: Male

DRUGS (1)
  1. IOVERSOL [Suspect]
     Active Substance: IOVERSOL
     Indication: Computerised tomogram
     Route: 042
     Dates: start: 20240416, end: 20240416

REACTIONS (2)
  - Rash pruritic [Recovered/Resolved]
  - Eosinophilia [Recovered/Resolved]

NARRATIVE: CASE EVENT DATE: 20240417
